FAERS Safety Report 6184258-7 (Version None)
Quarter: 2009Q2

REPORT INFORMATION
  Report Type: 
  Country: None (occurrence: None)
  Receive Date: 20090508
  Receipt Date: 20090427
  Transmission Date: 20091009
  Serious: Yes (Other)
  Sender: FDA-Public Use
  Company Number: US-PFIZER INC-2009207832

PATIENT
  Sex: Female
  Weight: 79.365 kg

DRUGS (4)
  1. CHANTIX [Suspect]
     Indication: SMOKING CESSATION THERAPY
     Dosage: 0.5 MG, 1X/DAY
     Dates: start: 20090424
  2. AVIANE-28 [Concomitant]
     Dosage: UNKNOWN
  3. CYMBALTA [Concomitant]
     Indication: DEPRESSION
     Dosage: UNKNOWN
  4. TRAZODONE [Concomitant]
     Dosage: UNKNOWN

REACTIONS (4)
  - AGITATION [None]
  - ANXIETY [None]
  - DEPRESSION [None]
  - PARANOIA [None]
